FAERS Safety Report 10904001 (Version 1)
Quarter: 2015Q1

REPORT INFORMATION
  Report Type: Spontaneous
  Country: DE (occurrence: DE)
  Receive Date: 20150311
  Receipt Date: 20150311
  Transmission Date: 20150721
  Serious: Yes (Disabling)
  Sender: FDA-Public Use
  Company Number: DE-SA-2015SA027987

PATIENT

DRUGS (1)
  1. THYMOGLOBULINE [Suspect]
     Active Substance: LAPINE T-LYMPHOCYTE IMMUNE GLOBULIN
     Indication: HEART TRANSPLANT
     Dosage: (APPLICATION TIME: {4 HOURS).
     Route: 041
     Dates: start: 2015, end: 2015

REACTIONS (2)
  - Skin discolouration [Unknown]
  - Skin necrosis [Unknown]

NARRATIVE: CASE EVENT DATE: 2015
